FAERS Safety Report 8295707-2 (Version None)
Quarter: 2012Q2

REPORT INFORMATION
  Report Type: 
  Country: None (occurrence: None)
  Receive Date: 20120416
  Receipt Date: 20120402
  Transmission Date: 20120825
  Serious: Yes (Other)
  Sender: FDA-Public Use
  Company Number: 2012MA004385

PATIENT
  Age: 7 Year
  Sex: Female

DRUGS (2)
  1. METHYLPHENIDATE HYDROCHLORIDE [Suspect]
     Indication: ATTENTION DEFICIT/HYPERACTIVITY DISORDER
     Dosage: 10 MG;BID
  2. METHYLPHENIDATE HYDROCHLORIDE [Suspect]
     Indication: OPPOSITIONAL DEFIANT DISORDER
     Dosage: 10 MG;BID

REACTIONS (9)
  - PARASOMNIA [None]
  - CONFUSIONAL STATE [None]
  - ABDOMINAL PAIN [None]
  - RAPID EYE MOVEMENTS SLEEP ABNORMAL [None]
  - TREMOR [None]
  - HALLUCINATION, VISUAL [None]
  - CRYING [None]
  - ANXIETY [None]
  - DECREASED APPETITE [None]
